FAERS Safety Report 5297458-5 (Version None)
Quarter: 2007Q2

REPORT INFORMATION
  Report Type: 
  Country: None (occurrence: None)
  Receive Date: 20070416
  Receipt Date: 20060918
  Transmission Date: 20071010
  Serious: No
  Sender: FDA-Public Use
  Company Number: US-GLAXOSMITHKLINE-A0620516A

PATIENT
  Age: 47 Year
  Sex: Female

DRUGS (7)
  1. COMPAZINE [Suspect]
     Indication: POSTURAL ORTHOSTATIC TACHYCARDIA SYNDROME
     Dosage: 3.125MG TWICE PER DAY
     Route: 048
     Dates: start: 20060501
  2. ZOVIA 1/35E-21 [Concomitant]
  3. MIDODRINE [Concomitant]
  4. FLORINEF [Concomitant]
  5. ULTRAM [Concomitant]
  6. AMBIEN [Concomitant]
  7. RELPAX [Concomitant]

REACTIONS (1)
  - TINNITUS [None]
